APPROVED DRUG PRODUCT: CLOBAZAM
Active Ingredient: CLOBAZAM
Strength: 5MG
Dosage Form/Route: TABLET;ORAL
Application: A212714 | Product #003
Applicant: ALKEM LABORATORIES LTD
Approved: Dec 21, 2020 | RLD: No | RS: No | Type: RX